FAERS Safety Report 5936155-7 (Version None)
Quarter: 2008Q4

REPORT INFORMATION
  Report Type: 
  Country: None (occurrence: None)
  Receive Date: 20081030
  Receipt Date: 20081021
  Transmission Date: 20090506
  Serious: Yes (Hospitalization)
  Sender: FDA-Public Use
  Company Number: JP-PFIZER INC-2008081886

PATIENT
  Sex: Female

DRUGS (4)
  1. AMLODIN [Suspect]
     Indication: HYPERTENSION
     Route: 048
  2. DIOVANE [Concomitant]
     Dosage: DAILY DOSE:80MG
     Route: 048
  3. MUCOSTA [Concomitant]
     Dosage: DAILY DOSE:200MG
     Route: 048
  4. ASPIRIN [Concomitant]
     Dosage: DAILY DOSE:100MG
     Route: 048

REACTIONS (3)
  - CONVULSION [None]
  - PYREXIA [None]
  - TREMOR [None]
